FAERS Safety Report 14379467 (Version 1)
Quarter: 2018Q1

REPORT INFORMATION
  Report Type: Report from Study
  Country: None (occurrence: BR)
  Receive Date: 20180112
  Receipt Date: 20180112
  Transmission Date: 20180509
  Serious: Yes (Death, Other)
  Sender: FDA-Public Use
  Company Number: BR-ABBVIE-18K-020-2220926-00

PATIENT
  Age: 84 Year
  Sex: Female
  Weight: 50 kg

DRUGS (1)
  1. HUMIRA [Suspect]
     Active Substance: ADALIMUMAB
     Indication: RHEUMATOID ARTHRITIS
     Route: 058
     Dates: start: 20170706, end: 2017

REACTIONS (9)
  - Muscular weakness [Unknown]
  - Anaemia [Unknown]
  - Depression [Unknown]
  - Gait disturbance [Unknown]
  - Weight decreased [Unknown]
  - Wound [Unknown]
  - Drug-induced liver injury [Fatal]
  - Dysgeusia [Unknown]
  - Liver disorder [Unknown]

NARRATIVE: CASE EVENT DATE: 201709
